FAERS Safety Report 8889249 (Version 2)
Quarter: 2012Q4

REPORT INFORMATION
  Report Type: Report from Study
  Country: JP (occurrence: JP)
  Receive Date: 20121106
  Receipt Date: 20121107
  Transmission Date: 20130627
  Serious: Yes (Hospitalization)
  Sender: FDA-Public Use
  Company Number: JP-JNJFOC-20121100702

PATIENT
  Age: 64 Year
  Sex: Female
  Weight: 39 kg

DRUGS (11)
  1. SIMPONI [Suspect]
     Indication: RHEUMATOID ARTHRITIS
     Route: 058
     Dates: start: 20121023, end: 20121023
  2. METHOTREXATE [Concomitant]
     Indication: RHEUMATOID ARTHRITIS
  3. PREDONINE [Concomitant]
     Indication: RHEUMATOID ARTHRITIS
     Route: 048
  4. CELECOX [Concomitant]
     Indication: RHEUMATOID ARTHRITIS
  5. FORTEO [Concomitant]
     Indication: RHEUMATOID ARTHRITIS
  6. FOLIAMIN [Concomitant]
     Indication: RHEUMATOID ARTHRITIS
  7. MUCOSTA [Concomitant]
     Indication: PROPHYLAXIS
  8. PARIET [Concomitant]
     Indication: PROPHYLAXIS
  9. LOXONIN [Concomitant]
     Indication: RHEUMATOID ARTHRITIS
     Route: 062
  10. LENDORMIN [Concomitant]
     Indication: INSOMNIA
  11. BLOPRESS [Concomitant]
     Indication: HYPERTENSION
     Route: 048

REACTIONS (1)
  - Administration related reaction [Recovered/Resolved]
